FAERS Safety Report 4306403-8 (Version None)
Quarter: 2004Q1

REPORT INFORMATION
  Report Type: 
  Country: None (occurrence: None)
  Receive Date: 20040225
  Receipt Date: 20030708
  Transmission Date: 20041129
  Serious: No
  Sender: FDA-Public Use
  Company Number: US-BRISTOL-MYERS SQUIBB COMPANY-12320842

PATIENT
  Age: 37 Year
  Sex: Male
  Weight: 95 kg

DRUGS (2)
  1. EXCEDRIN ES TABS [Suspect]
     Indication: CHEST PAIN
     Route: 048
     Dates: start: 20030706, end: 20030706
  2. PEPTO-BISMOL [Concomitant]
     Indication: CHEST PAIN
     Route: 048
     Dates: start: 20030706, end: 20030706

REACTIONS (3)
  - ALANINE AMINOTRANSFERASE INCREASED [None]
  - ASPARTATE AMINOTRANSFERASE INCREASED [None]
  - PEPTIC ULCER [None]
